FAERS Safety Report 5028015-3 (Version None)
Quarter: 2006Q2

REPORT INFORMATION
  Report Type: 
  Country: None (occurrence: None)
  Receive Date: 20060612
  Receipt Date: 20060525
  Transmission Date: 20061013
  Serious: Yes (Other)
  Sender: FDA-Public Use
  Company Number: 2006US001124

PATIENT
  Sex: 0

DRUGS (1)
  1. PROTOPIC [Suspect]
     Indication: ORAL LICHEN PLANUS
     Dosage: TOPICAL
     Route: 061

REACTIONS (1)
  - SQUAMOUS CELL CARCINOMA [None]
